FAERS Safety Report 17807191 (Version 1)
Quarter: 2020Q2

REPORT INFORMATION
  Report Type: Spontaneous
  Country: KZ (occurrence: KZ)
  Receive Date: 20200520
  Receipt Date: 20200520
  Transmission Date: 20200714
  Serious: Yes (Other)
  Sender: FDA-Public Use
  Company Number: KZ-BAUSCH-BL-2020-014602

PATIENT
  Age: 48 Year
  Sex: Female

DRUGS (1)
  1. ALFA NORMIX 200 MG [Suspect]
     Active Substance: RIFAXIMIN
     Indication: HEPATIC ENCEPHALOPATHY
     Route: 048

REACTIONS (4)
  - Polyneuropathy [Unknown]
  - Condition aggravated [Unknown]
  - Hepatic encephalopathy [Unknown]
  - Dizziness [Unknown]

NARRATIVE: CASE EVENT DATE: 2020
